FAERS Safety Report 4416678-2 (Version None)
Quarter: 2004Q2

REPORT INFORMATION
  Report Type: 
  Country: None (occurrence: None)
  Receive Date: 20040630
  Receipt Date: 20031027
  Transmission Date: 20050107
  Serious: Yes (Hospitalization)
  Sender: FDA-Public Use
  Company Number: WAES 0310USA03040

PATIENT
  Age: 62 Year
  Sex: Male

DRUGS (2)
  1. HYZAAR [Suspect]
     Dosage: 100-25 MG/DAILY/PO
     Route: 048
     Dates: start: 20030806
  2. ZOCOR [Concomitant]

REACTIONS (3)
  - DIZZINESS [None]
  - HYPOKALAEMIA [None]
  - SYNCOPE [None]
